FAERS Safety Report 20057047 (Version 1)
Quarter: 2021Q4

REPORT INFORMATION
  Report Type: Spontaneous
  Country: DE (occurrence: DE)
  Receive Date: 20211111
  Receipt Date: 20211111
  Transmission Date: 20220303
  Serious: Yes (Other)
  Sender: FDA-Public Use
  Company Number: DE-ABBVIE-21K-062-4155110-00

PATIENT
  Sex: Male

DRUGS (1)
  1. TESTOSTERONE [Suspect]
     Active Substance: TESTOSTERONE
     Indication: Androgen deficiency
     Dosage: 1 STROKE MORNING AT 7:00 A.M. FOR 4?16.3 MILLIGRAM PER GRAM
     Route: 065

REACTIONS (19)
  - Drug abuse [Unknown]
  - Fatigue [Unknown]
  - Disturbance in attention [Unknown]
  - Dyspnoea [Unknown]
  - Sleep disorder [Unknown]
  - Chest pain [Unknown]
  - Hypoaesthesia [Unknown]
  - Peripheral coldness [Unknown]
  - Asthenia [Unknown]
  - Loss of personal independence in daily activities [Unknown]
  - Pain in extremity [Unknown]
  - Head discomfort [Unknown]
  - Listless [Unknown]
  - Dizziness [Unknown]
  - Headache [Unknown]
  - Depression [Unknown]
  - Blood testosterone abnormal [Unknown]
  - Condition aggravated [Unknown]
  - Therapeutic response shortened [Unknown]
